FAERS Safety Report 6842045-8 (Version None)
Quarter: 2010Q3

REPORT INFORMATION
  Report Type: 
  Country: None (occurrence: None)
  Receive Date: 20100714
  Receipt Date: 20070718
  Transmission Date: 20110219
  Serious: No
  Sender: FDA-Public Use
  Company Number: US-PFIZER INC-2007061134

PATIENT
  Sex: Male
  Weight: 90.7 kg

DRUGS (6)
  1. CHANTIX [Suspect]
     Indication: SMOKING CESSATION THERAPY
     Dates: start: 20070619
  2. GLYBURIDE [Concomitant]
  3. LEVOTHYROXINE SODIUM [Concomitant]
  4. VITAMIN B [Concomitant]
  5. VITAMIN C [Concomitant]
  6. GEMFIBROZIL [Concomitant]

REACTIONS (2)
  - DECREASED APPETITE [None]
  - DYSGEUSIA [None]
